FAERS Safety Report 5611359-1 (Version None)
Quarter: 2008Q1

REPORT INFORMATION
  Report Type: 
  Country: None (occurrence: None)
  Receive Date: 20080201
  Receipt Date: 20080122
  Transmission Date: 20080703
  Serious: Yes (Other)
  Sender: FDA-Public Use
  Company Number: US-PFIZER INC-2007103056

PATIENT
  Sex: Male
  Weight: 79.545 kg

DRUGS (7)
  1. CHANTIX [Suspect]
     Indication: SMOKING CESSATION THERAPY
     Dosage: TEXT:EVERY DAY
  2. ATENOLOL [Concomitant]
     Route: 048
  3. ADVAIR DISKUS 100/50 [Concomitant]
     Route: 055
  4. SPIRIVA [Concomitant]
     Route: 055
  5. HYDROXYZINE [Concomitant]
     Route: 048
  6. COMBIVENT [Concomitant]
     Route: 055
  7. SOMA [Concomitant]
     Route: 048

REACTIONS (3)
  - EPISTAXIS [None]
  - ESSENTIAL HYPERTENSION [None]
  - PALPITATIONS [None]
